FAERS Safety Report 16140754 (Version 3)
Quarter: 2020Q1

REPORT INFORMATION
  Report Type: Report from Study
  Country: IL (occurrence: IL)
  Receive Date: 20190401
  Receipt Date: 20200210
  Transmission Date: 20200409
  Serious: Yes (Hospitalization)
  Sender: FDA-Public Use
  Company Number: IL-ROCHE-2219935

PATIENT
  Age: 66 Year
  Sex: Female
  Weight: 47.6 kg

DRUGS (15)
  1. ZANTAC [Concomitant]
     Active Substance: RANITIDINE HYDROCHLORIDE
     Indication: PREMEDICATION
     Route: 065
     Dates: start: 20180807, end: 20181211
  2. ATEZOLIZUMAB. [Suspect]
     Active Substance: ATEZOLIZUMAB
     Indication: OVARIAN CANCER
     Dosage: 14/NOV/2018, MOST RECENT DOSE OF ATEZOLIZUMAB PRIOR TO SAE ONSET
     Route: 042
     Dates: start: 20180807
  3. PALONOSETRON. [Concomitant]
     Active Substance: PALONOSETRON HYDROCHLORIDE
     Indication: PROPHYLAXIS OF NAUSEA AND VOMITING
  4. PACLITAXEL. [Suspect]
     Active Substance: PACLITAXEL
     Indication: OVARIAN CANCER
     Dosage: 14/NOV/2018, LAST PACLITAXEL ADMINISTERED PRIOR TO SAE ONSET 255 MG
     Route: 042
     Dates: start: 20180807
  5. DEXACORT [DEXAMETHASONE] [Concomitant]
     Indication: PREMEDICATION
     Route: 042
     Dates: start: 20180807, end: 20181211
  6. LAMIVUDINE. [Concomitant]
     Active Substance: LAMIVUDINE
     Indication: VIRAL HEPATITIS CARRIER
     Route: 065
     Dates: start: 20180824
  7. ROKACET PLUS [Concomitant]
     Indication: PROCEDURAL PAIN
     Route: 065
     Dates: start: 20180716
  8. LORATADINE. [Concomitant]
     Active Substance: LORATADINE
     Indication: PREMEDICATION
     Route: 065
     Dates: start: 20180807, end: 20181211
  9. ESOMEPRAZOLE. [Concomitant]
     Active Substance: ESOMEPRAZOLE MAGNESIUM
     Indication: ABDOMINAL PAIN UPPER
     Route: 065
     Dates: start: 20181026, end: 20181213
  10. DEXACORT [DEXAMETHASONE] [Concomitant]
     Route: 042
     Dates: start: 20181114, end: 20181114
  11. BEVACIZUMAB. [Suspect]
     Active Substance: BEVACIZUMAB
     Indication: OVARIAN CANCER
     Dosage: 14/NOV/2018, LAST BEVACIZUMAB ADMINISTERED PRIOR TO SAE ONSET 765 MG
     Route: 042
     Dates: start: 20180912
  12. CARBOPLATIN. [Suspect]
     Active Substance: CARBOPLATIN
     Indication: OVARIAN CANCER
     Dosage: DOSE TO ACHIEVE A TARGET AREA UNDER THE CURVE (AUC) OF 6 MILLIGRAMS PER MILLILITER*MINUTE (MG/ML*MIN
     Route: 042
     Dates: start: 20180807
  13. PALONOSETRON. [Concomitant]
     Active Substance: PALONOSETRON HYDROCHLORIDE
     Indication: PROPHYLAXIS OF NAUSEA AND VOMITING
     Route: 065
     Dates: start: 20180807, end: 20181211
  14. DEXACORT [DEXAMETHASONE] [Concomitant]
     Route: 042
     Dates: start: 20181025, end: 20181025
  15. LAEVOLAC [Concomitant]
     Active Substance: LACTULOSE
     Indication: CONSTIPATION
     Route: 065
     Dates: start: 20181125, end: 20181125

REACTIONS (1)
  - Anaemia [Recovered/Resolved with Sequelae]

NARRATIVE: CASE EVENT DATE: 20181121
